FAERS Safety Report 25455685 (Version 1)
Quarter: 2025Q2

REPORT INFORMATION
  Report Type: Spontaneous
  Country: TW (occurrence: TW)
  Receive Date: 20250619
  Receipt Date: 20250619
  Transmission Date: 20250717
  Serious: Yes (Death, Other)
  Sender: BRISTOL-MYERS SQUIBB COMPANY
  Company Number: TW-BRISTOL-MYERS SQUIBB COMPANY-2025-087293

PATIENT
  Age: 85 Year
  Sex: Male
  Weight: 50 kg

DRUGS (5)
  1. OPDIVO [Suspect]
     Active Substance: NIVOLUMAB
     Indication: Oesophageal squamous cell carcinoma stage IV
     Route: 042
     Dates: start: 20250402, end: 20250402
  2. UFUR [Concomitant]
     Indication: Oesophageal squamous cell carcinoma stage IV
     Dosage: 100 MG/224 MG
     Dates: start: 20250126
  3. UFUR [Concomitant]
     Dosage: 100 MG/224 MG
     Dates: start: 20250312
  4. UFUR [Concomitant]
     Dosage: 100 MG/224 MG
     Dates: start: 20250318
  5. UFUR [Concomitant]
     Dosage: 100 MG/224 MG
     Dates: start: 20250402

REACTIONS (2)
  - Pneumonia aspiration [Fatal]
  - Respiratory disorder [Fatal]
